FAERS Safety Report 4954955-7 (Version None)
Quarter: 2006Q1

REPORT INFORMATION
  Report Type: 
  Country: None (occurrence: None)
  Receive Date: 20060322
  Receipt Date: 20060314
  Transmission Date: 20060701
  Serious: Yes (Other)
  Sender: FDA-Public Use
  Company Number: 2006036397

PATIENT
  Age: 11 Year
  Sex: Female
  Weight: 40.3701 kg

DRUGS (1)
  1. SUDAFED 12 HOUR [Suspect]
     Indication: NASOPHARYNGITIS
     Dosage: 2 TEASPOONS TWICE, ORAL
     Route: 048
     Dates: start: 20060312, end: 20060312

REACTIONS (2)
  - DIZZINESS [None]
  - SYNCOPE [None]
